FAERS Safety Report 15251460 (Version 2)
Quarter: 2018Q3

REPORT INFORMATION
  Report Type: Report from Study
  Country: CA (occurrence: CA)
  Receive Date: 20180807
  Receipt Date: 20180907
  Transmission Date: 20181010
  Serious: Yes (Hospitalization, Other)
  Sender: FDA-Public Use
  Company Number: CA-SA-2018SA103019

PATIENT
  Age: 72 Year
  Sex: Male
  Weight: 77 kg

DRUGS (7)
  1. CABAZITAXEL [Suspect]
     Active Substance: CABAZITAXEL
     Dosage: 41.4 MG,Q3W
     Route: 042
     Dates: start: 20180425, end: 20180425
  2. CABAZITAXEL [Suspect]
     Active Substance: CABAZITAXEL
     Dosage: 38 MG, Q3W
     Route: 042
     Dates: start: 20180605, end: 20180605
  3. CABAZITAXEL [Suspect]
     Active Substance: CABAZITAXEL
     Dosage: 37 MG, Q3W
     Route: 042
     Dates: start: 20180627, end: 20180627
  4. CABAZITAXEL [Suspect]
     Active Substance: CABAZITAXEL
     Dosage: 37 MG,Q3W
     Route: 042
     Dates: start: 20180515, end: 20180515
  5. CABAZITAXEL [Suspect]
     Active Substance: CABAZITAXEL
     Dosage: 40 MG, Q3W
     Route: 042
     Dates: start: 20180808, end: 20180808
  6. CABAZITAXEL [Suspect]
     Active Substance: CABAZITAXEL
     Indication: PROSTATE CANCER
     Dosage: 40 MG, Q3W
     Route: 042
     Dates: start: 20180405, end: 20180405
  7. CABAZITAXEL [Suspect]
     Active Substance: CABAZITAXEL
     Dosage: 40 MG, Q3W
     Route: 042
     Dates: start: 20180717, end: 20180717

REACTIONS (19)
  - Bladder neoplasm [Not Recovered/Not Resolved]
  - Red blood cell count decreased [Not Recovered/Not Resolved]
  - Haematocrit decreased [Not Recovered/Not Resolved]
  - Urosepsis [Recovered/Resolved]
  - Weight increased [Not Recovered/Not Resolved]
  - Nephrostomy [Recovered/Resolved]
  - Weight increased [Not Recovered/Not Resolved]
  - Pyrexia [Recovered/Resolved]
  - Haemoglobin decreased [Not Recovered/Not Resolved]
  - Disease progression [Not Recovered/Not Resolved]
  - Prostatic specific antigen increased [Not Recovered/Not Resolved]
  - Fatigue [Recovered/Resolved]
  - Fatigue [Recovering/Resolving]
  - Haemoglobin decreased [Recovering/Resolving]
  - Fatigue [Recovering/Resolving]
  - Blood test abnormal [Not Recovered/Not Resolved]
  - Haematuria [Recovering/Resolving]
  - Pain [Recovered/Resolved]
  - Haemoglobin abnormal [Not Recovered/Not Resolved]

NARRATIVE: CASE EVENT DATE: 20180411
